FAERS Safety Report 5836797-3 (Version None)
Quarter: 2008Q3

REPORT INFORMATION
  Report Type: 
  Country: None (occurrence: None)
  Receive Date: 20080806
  Receipt Date: 20080806
  Transmission Date: 20090109
  Serious: Yes (Life-Threatening)
  Sender: FDA-Public Use
  Company Number: None

PATIENT
  Age: 59 Year
  Sex: Female
  Weight: 86.1834 kg

DRUGS (1)
  1. PERSANTINE [Suspect]
     Indication: CARDIAC STRESS TEST

REACTIONS (5)
  - CONVULSION [None]
  - DRUG HYPERSENSITIVITY [None]
  - HYPOAESTHESIA [None]
  - MOVEMENT DISORDER [None]
  - WAIST CIRCUMFERENCE INCREASED [None]
